FAERS Safety Report 9217388 (Version 1)
Quarter: 2013Q2

REPORT INFORMATION
  Report Type: Spontaneous
  Country: US (occurrence: US)
  Receive Date: 20130408
  Receipt Date: 20130408
  Transmission Date: 20140414
  Serious: No
  Sender: FDA-Public Use
  Company Number: US-B.I. PHARMACEUTICALS,INC./RIDGEFIELD-2013-BI-07222BP

PATIENT
  Sex: Male
  Weight: 78 kg

DRUGS (2)
  1. FLOMAX CAPSULES [Suspect]
     Indication: PROSTATOMEGALY
     Dosage: 0.4 MG
     Route: 048
     Dates: start: 2012
  2. GENERIC FLOMAX [Concomitant]
     Indication: PROSTATOMEGALY
     Dates: start: 2012

REACTIONS (2)
  - Pollakiuria [Not Recovered/Not Resolved]
  - Urinary incontinence [Not Recovered/Not Resolved]
